FAERS Safety Report 8213395-8 (Version None)
Quarter: 2012Q1

REPORT INFORMATION
  Report Type: 
  Country: None (occurrence: None)
  Receive Date: 20120315
  Receipt Date: 20120301
  Transmission Date: 20120608
  Serious: Yes (Other)
  Sender: FDA-Public Use
  Company Number: JP-ROCHE-1033051

PATIENT
  Sex: Female
  Weight: 41 kg

DRUGS (7)
  1. HALOPERIDOL [Concomitant]
     Indication: SCHIZOPHRENIA
     Route: 048
     Dates: start: 20050920, end: 20120106
  2. TAMIFLU [Suspect]
     Route: 048
     Dates: start: 20120109, end: 20120109
  3. TAMIFLU [Suspect]
     Indication: INFLUENZA
     Route: 048
     Dates: start: 20120104, end: 20120104
  4. TAMIFLU [Suspect]
     Route: 048
     Dates: start: 20120105, end: 20120108
  5. PRAVASTATIN SODIUM [Concomitant]
     Indication: DYSLIPIDAEMIA
     Route: 048
     Dates: start: 20100907, end: 20120106
  6. CHLORPROMAZINE HCL [Concomitant]
     Indication: SCHIZOPHRENIA
     Route: 048
     Dates: start: 20100126, end: 20120106
  7. ACETAMINOPHEN [Concomitant]
     Indication: PYREXIA
     Route: 048
     Dates: start: 20120105

REACTIONS (1)
  - RHABDOMYOLYSIS [None]
